FAERS Safety Report 9514766 (Version 2)
Quarter: 2013Q4

REPORT INFORMATION
  Report Type: Spontaneous
  Country: JP (occurrence: JP)
  Receive Date: 20130911
  Receipt Date: 20131017
  Transmission Date: 20140711
  Serious: Yes (Hospitalization, Other)
  Sender: FDA-Public Use
  Company Number: JP-SHIRE-ALL1-2013-06074

PATIENT
  Age: 64 Year
  Sex: Female

DRUGS (10)
  1. FOSRENOL [Suspect]
     Indication: RENAL FAILURE CHRONIC
     Dosage: 750 MG, UNKNOWN (TOTAL DAILY DOSE 750MG, UNKNOWN FREQUENCY)
     Route: 048
     Dates: start: 20130730, end: 20130820
  2. INDOMETACIN [Concomitant]
     Indication: PRODUCT USED FOR UNKNOWN INDICATION
     Dosage: UNK, UNKNOWN
     Route: 062
  3. ADALAT CRONO [Concomitant]
     Indication: HYPERTENSION
     Dosage: 20 MG, UNKNOWN
     Route: 048
     Dates: start: 20120101
  4. SINGULAIR [Concomitant]
     Indication: ASTHMA
     Dosage: 10 MG, UNKNOWN
     Route: 048
     Dates: start: 20120103
  5. OMEPRAL                            /00661201/ [Concomitant]
     Indication: GASTRITIS PROPHYLAXIS
     Dosage: 20 MG, UNKNOWN
     Route: 048
     Dates: start: 20120103
  6. AVAPRO [Concomitant]
     Indication: HYPERTENSION
     Dosage: 50 MG, UNKNOWN
     Route: 048
     Dates: start: 20120327
  7. CALTAN [Concomitant]
     Indication: HYPERPHOSPHATAEMIA
     Dosage: 3000 MG, UNKNOWN
     Route: 048
     Dates: start: 20120103
  8. REBAMIPIDE [Concomitant]
     Indication: GASTRITIS PROPHYLAXIS
     Dosage: 200 MG, UNKNOWN
     Route: 048
     Dates: start: 20130316
  9. BAYASPIRIN [Concomitant]
     Indication: ANGINA PECTORIS
     Dosage: 100 MG, UNKNOWN
     Route: 048
     Dates: start: 20130720
  10. PLAVIX [Concomitant]
     Indication: ANGINA PECTORIS
     Dosage: 75 MG, UNKNOWN
     Route: 048
     Dates: start: 20130720

REACTIONS (5)
  - Hepatic function abnormal [Recovering/Resolving]
  - Pneumonia [Recovered/Resolved]
  - Cardiac failure [Recovered/Resolved]
  - Upper respiratory tract inflammation [Recovered/Resolved]
  - Headache [Recovered/Resolved]
